FAERS Safety Report 9628436 (Version 1)
Quarter: 2013Q4

REPORT INFORMATION
  Report Type: Spontaneous
  Country: US (occurrence: US)
  Receive Date: 20131017
  Receipt Date: 20131017
  Transmission Date: 20140711
  Serious: No
  Sender: FDA-Public Use
  Company Number: US-PFIZER INC-2013295127

PATIENT
  Age: 50 Year
  Sex: Female
  Weight: 176.42 kg

DRUGS (4)
  1. CHANTIX [Suspect]
     Indication: SMOKING CESSATION THERAPY
     Dosage: 0.5 MG, DAILY
     Dates: start: 201310, end: 201310
  2. CHANTIX [Suspect]
     Dosage: 0.5 MG, 2X/DAY
     Dates: start: 201310, end: 201310
  3. CHANTIX [Suspect]
     Dosage: 1 MG, 2X/DAY
     Dates: start: 201310
  4. COFFEE [Suspect]
     Dosage: UNK

REACTIONS (5)
  - Depression [Unknown]
  - Insomnia [Unknown]
  - Fatigue [Unknown]
  - Nausea [Unknown]
  - Drug dose omission [Unknown]
